FAERS Safety Report 7619687-5 (Version None)
Quarter: 2011Q3

REPORT INFORMATION
  Report Type: 
  Country: None (occurrence: None)
  Receive Date: 20110719
  Receipt Date: 20110706
  Transmission Date: 20111222
  Serious: Yes (Other)
  Sender: FDA-Public Use
  Company Number: US-AMGEN-USASP2011025499

PATIENT
  Age: 47 Year
  Sex: Male
  Weight: 97.5 kg

DRUGS (4)
  1. VERSED [Concomitant]
     Dosage: 4 MG, UNK
  2. ENBREL [Suspect]
     Indication: PSORIATIC ARTHROPATHY
     Dosage: 50 MG, QWK
     Dates: start: 20090617, end: 20110301
  3. FENTANYL-100 [Concomitant]
     Dosage: 100 A?G, UNK
  4. ENBREL [Suspect]
     Dosage: 50 MG, QWK
     Dates: start: 20110509

REACTIONS (6)
  - CARDIOMYOPATHY [None]
  - CARDIAC FAILURE [None]
  - INSOMNIA [None]
  - DIABETES MELLITUS [None]
  - SLEEP APNOEA SYNDROME [None]
  - PSORIASIS [None]
